FAERS Safety Report 4305665-0 (Version None)
Quarter: 2004Q1

REPORT INFORMATION
  Report Type: 
  Country: None (occurrence: None)
  Receive Date: 20040226
  Receipt Date: 20040106
  Transmission Date: 20041129
  Serious: Yes (Other)
  Sender: FDA-Public Use
  Company Number: US-BRISTOL-MYERS SQUIBB COMPANY-12472163

PATIENT
  Age: 4 Year
  Sex: Female
  Weight: 39 kg

DRUGS (4)
  1. ABILIFY [Suspect]
     Indication: BIPOLAR DISORDER
     Dosage: 5 MG 22-NOV-03 TO 22-DEC-03; THEN INCREASED TO 10 MG UNTIL 31-DEC-03.
     Route: 048
     Dates: start: 20031122, end: 20031231
  2. ABILIFY [Suspect]
     Indication: ATTENTION DEFICIT/HYPERACTIVITY DISORDER
     Dosage: 5 MG 22-NOV-03 TO 22-DEC-03; THEN INCREASED TO 10 MG UNTIL 31-DEC-03.
     Route: 048
     Dates: start: 20031122, end: 20031231
  3. RISPERDAL [Concomitant]
  4. CATAPRES [Concomitant]
     Dates: start: 20030721

REACTIONS (1)
  - CONVULSION [None]
